FAERS Safety Report 9096980 (Version 1)
Quarter: 2013Q1

REPORT INFORMATION
  Report Type: Spontaneous
  Country: US (occurrence: None)
  Receive Date: 20130124
  Receipt Date: 20130124
  Transmission Date: 20140127
  Serious: Yes (Death)
  Sender: FDA-Public Use
  Company Number: 2013P1000996

PATIENT
  Age: 60 Year
  Sex: Male

DRUGS (5)
  1. DIGOXIN [Suspect]
     Indication: COMPLETED SUICIDE
     Route: 048
  2. METOPROLOL [Suspect]
     Indication: COMPLETED SUICIDE
     Route: 048
  3. ACETAMINOPHEN/ HYDROCODONE [Suspect]
     Indication: COMPLETED SUICIDE
     Route: 048
  4. DIAZEPAM [Suspect]
     Indication: COMPLETED SUICIDE
     Route: 048
  5. ^DRUG, UNKNOWN^ [Suspect]
     Indication: COMPLETED SUICIDE

REACTIONS (2)
  - Completed suicide [None]
  - Cardioactive drug level increased [None]
